FAERS Safety Report 15565120 (Version 1)
Quarter: 2018Q4

REPORT INFORMATION
  Report Type: Spontaneous
  Country: US (occurrence: US)
  Receive Date: 20181030
  Receipt Date: 20181030
  Transmission Date: 20190205
  Serious: No
  Sender: FDA-Public Use
  Company Number: PHHY2018US140610

PATIENT
  Age: 56 Year
  Sex: Female

DRUGS (2)
  1. LYNPARZA [Concomitant]
     Active Substance: OLAPARIB
     Indication: BREAST CANCER FEMALE
     Dosage: 50 MG, QD
     Route: 048
  2. AFINITOR [Suspect]
     Active Substance: EVEROLIMUS
     Indication: BREAST CANCER
     Dosage: UNK
     Route: 065

REACTIONS (1)
  - Stomatitis [Unknown]
